FAERS Safety Report 21680894 (Version 1)
Quarter: 2022Q4

REPORT INFORMATION
  Report Type: Spontaneous
  Country: US (occurrence: None)
  Receive Date: 20221202
  Receipt Date: 20221202
  Transmission Date: 20230113
  Serious: No
  Sender: FDA-Public Use
  Company Number: None

PATIENT
  Age: 82 Year
  Sex: Male
  Weight: 99.6 kg

DRUGS (2)
  1. GEMCITABINE HYDROCHLORIDE [Suspect]
     Active Substance: GEMCITABINE HYDROCHLORIDE
     Dates: end: 20221108
  2. PACLITAXEL [Suspect]
     Active Substance: PACLITAXEL

REACTIONS (8)
  - Fatigue [None]
  - Asthenia [None]
  - Fall [None]
  - Hypersomnia [None]
  - Loss of personal independence in daily activities [None]
  - Gait inability [None]
  - Haemoglobin decreased [None]
  - Therapy interrupted [None]

NARRATIVE: CASE EVENT DATE: 20221111
